FAERS Safety Report 5517119-4 (Version None)
Quarter: 2007Q4

REPORT INFORMATION
  Report Type: 
  Country: None (occurrence: None)
  Receive Date: 20071114
  Receipt Date: 20071107
  Transmission Date: 20080405
  Serious: Yes (Other)
  Sender: FDA-Public Use
  Company Number: A0694351A

PATIENT
  Sex: Male

DRUGS (4)
  1. BUPROPION HCL [Suspect]
     Indication: DRUG USE FOR UNKNOWN INDICATION
  2. AUGMENTIN '500' [Suspect]
     Indication: DRUG USE FOR UNKNOWN INDICATION
  3. ARICEPT [Suspect]
     Indication: DRUG USE FOR UNKNOWN INDICATION
  4. NAMENDA [Suspect]
     Indication: DRUG USE FOR UNKNOWN INDICATION

REACTIONS (1)
  - HALLUCINATION [None]
